FAERS Safety Report 4262076-4 (Version None)
Quarter: 2004Q1

REPORT INFORMATION
  Report Type: 
  Country: None (occurrence: None)
  Receive Date: 20040102
  Receipt Date: 20031219
  Transmission Date: 20041129
  Serious: Yes (Death)
  Sender: FDA-Public Use
  Company Number: PK-GLAXOSMITHKLINE-B0318299A

PATIENT
  Age: 3 Year
  Sex: Male

DRUGS (1)
  1. PENBRITIN [Suspect]
     Indication: GASTROENTERITIS
     Dosage: 250MG TWICE PER DAY
     Route: 042

REACTIONS (1)
  - DEATH [None]
